FAERS Safety Report 20954450 (Version 2)
Quarter: 2022Q2

REPORT INFORMATION
  Report Type: Report from Study
  Country: US (occurrence: None)
  Receive Date: 20220614
  Receipt Date: 20220615
  Transmission Date: 20220721
  Serious: No
  Sender: FDA-Public Use
  Company Number: US-MDD US Operations-MDD202106-001082

PATIENT
  Age: 78 Year
  Sex: Female
  Weight: 46.72 kg

DRUGS (10)
  1. APOKYN [Suspect]
     Active Substance: APOMORPHINE HYDROCHLORIDE
     Indication: Parkinson^s disease
     Dosage: NOT PROVIDED
     Dates: start: 202003, end: 202004
  2. APOKYN [Suspect]
     Active Substance: APOMORPHINE HYDROCHLORIDE
     Route: 058
     Dates: start: 20210319, end: 20210607
  3. APOKYN [Suspect]
     Active Substance: APOMORPHINE HYDROCHLORIDE
     Route: 058
     Dates: start: 20210409
  4. SINEMET [Concomitant]
     Active Substance: CARBIDOPA\LEVODOPA
     Dosage: NOT PROVIDED
  5. TIGAN [Concomitant]
     Active Substance: TRIMETHOBENZAMIDE HYDROCHLORIDE
     Dosage: NOT PROVIDED
  6. AMITIZA [Concomitant]
     Active Substance: LUBIPROSTONE
     Indication: Blood pressure abnormal
     Dosage: NOT PROVIDED
  7. ENTACAPONE [Concomitant]
     Active Substance: ENTACAPONE
     Dosage: NOT PROVIDED
  8. MEMANTINE [Concomitant]
     Active Substance: MEMANTINE
     Dosage: NOT PROVIDED
  9. TEDRAL [Concomitant]
     Active Substance: EPHEDRINE HYDROCHLORIDE\PHENOBARBITAL\THEOPHYLLINE
     Dosage: NOT PROVIDED
  10. CARBIDOPA\LEVODOPA [Concomitant]
     Active Substance: CARBIDOPA\LEVODOPA

REACTIONS (1)
  - Dizziness [Recovered/Resolved]

NARRATIVE: CASE EVENT DATE: 20210601
